FAERS Safety Report 11930434 (Version 2)
Quarter: 2016Q1

REPORT INFORMATION
  Report Type: Spontaneous
  Country: NL (occurrence: NL)
  Receive Date: 20160120
  Receipt Date: 20160127
  Transmission Date: 20160526
  Serious: Yes (Hospitalization)
  Sender: FDA-Public Use
  Company Number: NL-TEVA-625439ACC

PATIENT
  Age: 58 Year
  Sex: Female
  Weight: 72 kg

DRUGS (5)
  1. PANTOPRAZOL TABLET MSR 40MG [Concomitant]
     Active Substance: PANTOPRAZOLE SODIUM
     Dosage: 40 MILLIGRAM DAILY; ONCE DAILY ONE PIECE; DAILY DOSE: 40MG
     Route: 048
  2. ALENCA D3 70MG/ 500MG/800IE(1T ALENDRONZ+6T CALCI) [Concomitant]
     Dosage: 1 DOSAGE FORMS DAILY; ONCE DAILY ONE PIECE; DAILY DOSE: 1DF
     Route: 048
  3. PARACETAMOL [Concomitant]
     Active Substance: ACETAMINOPHEN
     Dosage: STRENGTH AND DOSAGE NOT KNOWN
     Route: 065
  4. PACLITAXEL INFOPL CONC 6MG/ML [Suspect]
     Active Substance: PACLITAXEL
     Indication: BREAST CANCER
     Dosage: ONCE WEEKLY ONE PIECE, ADDITIONAL INFO: 149 MGR EVERY WEEK/80MGR PER M2
     Route: 042
     Dates: start: 20151006
  5. NAPROXEN. [Concomitant]
     Active Substance: NAPROXEN
     Dosage: 1000 MILLIGRAM DAILY; TWICE DAILY ONE PIECE; DAILY DOSE: 1000MG
     Route: 065

REACTIONS (1)
  - Pneumonitis [Recovering/Resolving]

NARRATIVE: CASE EVENT DATE: 20151230
